FAERS Safety Report 6959084-9 (Version None)
Quarter: 2010Q3

REPORT INFORMATION
  Report Type: 
  Country: None (occurrence: None)
  Receive Date: 20100831
  Receipt Date: 20100826
  Transmission Date: 20110219
  Serious: Yes (Disabling)
  Sender: FDA-Public Use
  Company Number: DK-BRACCO-000057

PATIENT
  Sex: Male

DRUGS (1)
  1. CONTRAST MEDIA (GADOLINIUM CONTAINING) [Suspect]
     Indication: SCAN WITH CONTRAST
     Dates: start: 20070912, end: 20070912

REACTIONS (1)
  - NEPHROGENIC SYSTEMIC FIBROSIS [None]
